FAERS Safety Report 7267551-6 (Version None)
Quarter: 2011Q1

REPORT INFORMATION
  Report Type: 
  Country: None (occurrence: None)
  Receive Date: 20110201
  Receipt Date: 20110124
  Transmission Date: 20110831
  Serious: Yes (Other)
  Sender: FDA-Public Use
  Company Number: CA-JNJFOC-20110107091

PATIENT
  Sex: Male
  Weight: 104 kg

DRUGS (2)
  1. IMURAN [Concomitant]
     Route: 048
  2. REMICADE [Suspect]
     Indication: CROHN'S DISEASE
     Route: 042

REACTIONS (4)
  - CROHN'S DISEASE [None]
  - WEIGHT DECREASED [None]
  - PYREXIA [None]
  - STRESS [None]
